FAERS Safety Report 18401484 (Version 5)
Quarter: 2021Q1

REPORT INFORMATION
  Report Type: Report from Study
  Country: US (occurrence: US)
  Receive Date: 20201019
  Receipt Date: 20210119
  Transmission Date: 20210419
  Serious: Yes (Hospitalization, Other)
  Sender: FDA-Public Use
  Company Number: NVSC2020US272454

PATIENT
  Age: 57 Year
  Sex: Male

DRUGS (3)
  1. TIKOSYN [Concomitant]
     Active Substance: DOFETILIDE
     Indication: PRODUCT USED FOR UNKNOWN INDICATION
     Dosage: UNK (TIMELINE UNCLEAR AS TO WHEN HE STOPPED)
     Route: 065
  2. ENTRESTO [Suspect]
     Active Substance: SACUBITRIL\VALSARTAN
     Dosage: 100 MG, BID (49/51 MG)
     Route: 048
     Dates: start: 20200930
  3. ENTRESTO [Suspect]
     Active Substance: SACUBITRIL\VALSARTAN
     Indication: PRODUCT USED FOR UNKNOWN INDICATION
     Dosage: UNK UNK, BID
     Route: 048
     Dates: start: 20200930

REACTIONS (24)
  - Osteomyelitis [Unknown]
  - Arrhythmia [Unknown]
  - Rhinorrhoea [Unknown]
  - Abdominal discomfort [Unknown]
  - Pain [Unknown]
  - Cellulitis [Unknown]
  - Dyspnoea [Unknown]
  - Psychiatric symptom [Unknown]
  - Throat clearing [Unknown]
  - Mobility decreased [Unknown]
  - Erythema [Unknown]
  - Gait disturbance [Unknown]
  - Cardiac failure [Unknown]
  - Decreased activity [Unknown]
  - Feeling hot [Unknown]
  - Pyrexia [Unknown]
  - Infectious disease carrier [Unknown]
  - Diarrhoea [Unknown]
  - Pain in extremity [Unknown]
  - Wound [Recovering/Resolving]
  - Abscess limb [Unknown]
  - Blister [Unknown]
  - Cough [Unknown]
  - Back disorder [Unknown]

NARRATIVE: CASE EVENT DATE: 202010
